FAERS Safety Report 9233762 (Version 1)
Quarter: 2013Q1

REPORT INFORMATION
  Report Type: Spontaneous
  Country: US (occurrence: None)
  Receive Date: 20121031
  Receipt Date: 20121031
  Transmission Date: 20140127
  Serious: No
  Sender: FDA-Public Use
  Company Number: PHEH2012US014870

PATIENT
  Age: 54 Year
  Sex: Female
  Weight: 74.8 kg

DRUGS (4)
  1. GILENYA (FTY)CAPSULE, 0.5MG [Suspect]
     Route: 048
  2. SELENIMIN TABLET [Concomitant]
  3. MULTI TABS (ASCORBIC ACID , CALCIUM PANTOTHENATE, COLBALTOUS SULFATE, COLECALCIFEROL, COPPER SULFATE, FERROUS FUMARATE, MAGNESIUM OXIDE, MAGNESIUM SULFATE, NICOTINAMIDE, PYRIDOXINE HYDROCHLORIDE, RETINOL, RIBOFLAVIN, THIAMINE) [Concomitant]
  4. GLUCOSE (GLUCOSE) GEL, 40% [Concomitant]

REACTIONS (1)
  - Decreased appetite [None]
